FAERS Safety Report 9223849 (Version 2)
Quarter: 2013Q2

REPORT INFORMATION
  Report Type: Spontaneous
  Country: BR (occurrence: BR)
  Receive Date: 20130411
  Receipt Date: 20130515
  Transmission Date: 20140414
  Serious: Yes (Hospitalization, Other)
  Sender: FDA-Public Use
  Company Number: BR-ABBOTT-13X-020-1073740-00

PATIENT
  Age: 55 Year
  Sex: Female
  Weight: 61 kg

DRUGS (3)
  1. DEPAKENE [Suspect]
     Indication: ARRHYTHMIA
     Dosage: ONE TABLET AT EIGHT AM AND ONE AT EIGHT PM
     Route: 048
  2. DEPAKENE [Suspect]
     Dates: start: 2004
  3. URBANIL [Concomitant]
     Indication: NERVOUSNESS
     Dosage: ONE TABLET IN THE MORNING ONE AT NIGHT
     Route: 048
     Dates: start: 20130330

REACTIONS (7)
  - Mobility decreased [Recovering/Resolving]
  - Tremor [Recovered/Resolved]
  - Arthralgia [Recovered/Resolved]
  - Off label use [Unknown]
  - Asthenia [Unknown]
  - Endocrine disorder [Unknown]
  - Hypertension [Unknown]
